FAERS Safety Report 18072194 (Version 1)
Quarter: 2020Q3

REPORT INFORMATION
  Report Type: Report from Study
  Country: BR (occurrence: BR)
  Receive Date: 20200727
  Receipt Date: 20200727
  Transmission Date: 20201103
  Serious: Yes (Other)
  Sender: FDA-Public Use
  Company Number: BR-EMD SERONO-9175589

PATIENT
  Age: 60 Year
  Sex: Female

DRUGS (3)
  1. REBIF [Suspect]
     Active Substance: INTERFERON BETA-1A
     Indication: MULTIPLE SCLEROSIS
     Route: 058
  2. BIO?MANGUINHOS BETAINTERFERONA 1A 22 MCG [Suspect]
     Active Substance: INTERFERON BETA-1A
     Indication: MULTIPLE SCLEROSIS
     Route: 058
     Dates: start: 20171211
  3. PROPRANOLOL [Concomitant]
     Active Substance: PROPRANOLOL HYDROCHLORIDE
     Indication: PRODUCT USED FOR UNKNOWN INDICATION

REACTIONS (13)
  - Wisdom teeth removal [Recovering/Resolving]
  - Sinusitis [Unknown]
  - Injection site necrosis [Recovered/Resolved]
  - Trigeminal neuralgia [Recovered/Resolved]
  - Pyrexia [Recovered/Resolved]
  - Hypothermia [Recovered/Resolved]
  - Fluid retention [Unknown]
  - Urinary incontinence [Unknown]
  - Rhinitis [Unknown]
  - Dyspepsia [Unknown]
  - Injection site pain [Recovered/Resolved]
  - Pruritus [Recovered/Resolved]
  - Product storage error [Unknown]

NARRATIVE: CASE EVENT DATE: 2017
